FAERS Safety Report 17082656 (Version 1)
Quarter: 2019Q4

REPORT INFORMATION
  Report Type: Spontaneous
  Country: CN (occurrence: CN)
  Receive Date: 20191127
  Receipt Date: 20191127
  Transmission Date: 20200122
  Serious: Yes (Death, Hospitalization)
  Sender: FDA-Public Use
  Company Number: CN-AMNEAL PHARMACEUTICALS-2019-AMRX-02923

PATIENT
  Age: 65 Year
  Sex: Male

DRUGS (7)
  1. PERINDOPRIL [Concomitant]
     Active Substance: PERINDOPRIL
     Indication: HYPERTENSION
     Dosage: 8 MILLIGRAM, QD
     Route: 065
  2. ACYCLOVIR. [Suspect]
     Active Substance: ACYCLOVIR
     Indication: HERPES ZOSTER
     Dosage: 0.5 GRAM, QD
     Route: 042
     Dates: start: 201807
  3. NIFEDIPINE. [Concomitant]
     Active Substance: NIFEDIPINE
     Indication: HYPERTENSION
     Dosage: 30 MILLIGRAM, BID
     Route: 065
  4. VALSARTAN. [Concomitant]
     Active Substance: VALSARTAN
     Indication: HYPERTENSION
     Dosage: 80 MILLIGRAM, BID
     Route: 065
  5. VALACYCLOVIR [Suspect]
     Active Substance: VALACYCLOVIR HYDROCHLORIDE
     Indication: HERPES ZOSTER
     Dosage: 0.3 GRAM, BID
     Route: 065
     Dates: start: 201807, end: 201807
  6. DEXAMETHASONE. [Concomitant]
     Active Substance: DEXAMETHASONE
     Indication: HERPES ZOSTER
  7. DEXAMETHASONE. [Concomitant]
     Active Substance: DEXAMETHASONE
     Indication: PAIN
     Dosage: 5 MILLIGRAM, QD CONTINUOUS TREATMENT FOR 3D
     Route: 065
     Dates: start: 201807

REACTIONS (3)
  - Neurotoxicity [Fatal]
  - Respiratory failure [Fatal]
  - Accidental overdose [Unknown]

NARRATIVE: CASE EVENT DATE: 201807
